FAERS Safety Report 8311169-0 (Version None)
Quarter: 2012Q2

REPORT INFORMATION
  Report Type: 
  Country: None (occurrence: None)
  Receive Date: 20120425
  Receipt Date: 20120417
  Transmission Date: 20120825
  Serious: Yes (Other)
  Sender: FDA-Public Use
  Company Number: US-JNJFOC-20120408357

PATIENT

DRUGS (4)
  1. CLADRIBINE [Suspect]
     Indication: ACUTE MYELOID LEUKAEMIA RECURRENT
     Route: 042
  2. CYTARABINE [Suspect]
     Indication: ACUTE MYELOID LEUKAEMIA RECURRENT
     Route: 042
  3. NEUPOGEN [Suspect]
     Indication: ACUTE MYELOID LEUKAEMIA RECURRENT
     Route: 058
  4. IMATINIB MESYLATE [Suspect]
     Indication: ACUTE MYELOID LEUKAEMIA RECURRENT
     Route: 048

REACTIONS (10)
  - VOMITING [None]
  - SEPSIS [None]
  - NAUSEA [None]
  - PNEUMONIA [None]
  - DIARRHOEA [None]
  - OEDEMA [None]
  - DECREASED APPETITE [None]
  - HYPOKALAEMIA [None]
  - RASH [None]
  - FEBRILE NEUTROPENIA [None]
